FAERS Safety Report 9819550 (Version 1)
Quarter: 2014Q1

REPORT INFORMATION
  Report Type: Spontaneous
  Country: US (occurrence: None)
  Receive Date: 20140113
  Receipt Date: 20140113
  Transmission Date: 20141002
  Serious: Yes (Other)
  Sender: FDA-Public Use
  Company Number: US-2013-4267

PATIENT
  Age: 47 Year
  Sex: Female

DRUGS (3)
  1. VINORELBIN [Suspect]
     Indication: OVARIAN EPITHELIAL CANCER
     Dosage: TOTAL DOSE 59MG DAY 1 + 15 (IV)
     Route: 042
  2. COUMADIN (WARFARIN SODIUM) [Concomitant]
  3. OXYCODONE (OXYCODONE) [Concomitant]

REACTIONS (8)
  - Inappropriate antidiuretic hormone secretion [None]
  - Pleural effusion [None]
  - Pneumonia haemophilus [None]
  - Condition aggravated [None]
  - Renal failure acute [None]
  - Failure to thrive [None]
  - Carbohydrate antigen 125 increased [None]
  - Haemophilus infection [None]
